FAERS Safety Report 18608904 (Version 1)
Quarter: 2020Q4

REPORT INFORMATION
  Report Type: Spontaneous
  Country: DE (occurrence: DE)
  Receive Date: 20201213
  Receipt Date: 20201213
  Transmission Date: 20210114
  Serious: Yes (Other)
  Sender: FDA-Public Use
  Company Number: DE-ESPERIONTHERAPEUTICS-2020DEU04994

PATIENT
  Age: 78 Year
  Sex: Male
  Weight: 117 kg

DRUGS (1)
  1. NUSTENDI [Suspect]
     Active Substance: BEMPEDOIC ACID\EZETIMIBE
     Indication: BLOOD CHOLESTEROL INCREASED
     Dosage: 180/10 MILLIGRAM
     Route: 048
     Dates: start: 20201113, end: 20201115

REACTIONS (2)
  - Thrombosis [Recovering/Resolving]
  - Peripheral swelling [Recovering/Resolving]

NARRATIVE: CASE EVENT DATE: 20201113
